FAERS Safety Report 5738182-1 (Version None)
Quarter: 2008Q2

REPORT INFORMATION
  Report Type: 
  Country: None (occurrence: None)
  Receive Date: 20080514
  Receipt Date: 20080506
  Transmission Date: 20081010
  Serious: Yes (Hospitalization)
  Sender: FDA-Public Use
  Company Number: DE-GENENTECH-260648

PATIENT
  Sex: Male

DRUGS (6)
  1. MABTHERA [Suspect]
     Indication: DIFFUSE LARGE B-CELL LYMPHOMA
     Dosage: 375 MG/M2, Q2W
     Route: 042
     Dates: start: 20071112
  2. OXALIPLATIN [Suspect]
     Indication: DIFFUSE LARGE B-CELL LYMPHOMA
     Dosage: UNK MG/M2, Q2W
     Route: 042
     Dates: start: 20071112
  3. GEMCITABINE [Suspect]
     Indication: DIFFUSE LARGE B-CELL LYMPHOMA
     Dosage: 1000 MG/M2, Q2W
     Route: 042
     Dates: start: 20071112
  4. ENZASTAURIN [Suspect]
     Indication: DIFFUSE LARGE B-CELL LYMPHOMA
     Dosage: 1125 MG, SINGLE
     Dates: start: 20071112
  5. ENZASTAURIN [Suspect]
     Dosage: 500 MG, QD
     Route: 048
  6. MEDICINE [Concomitant]
     Indication: DRUG USE FOR UNKNOWN INDICATION

REACTIONS (6)
  - INFECTION [None]
  - INSOMNIA [None]
  - MALAISE [None]
  - NAUSEA [None]
  - THROMBOPHLEBITIS [None]
  - VOMITING [None]
